FAERS Safety Report 7265113-8 (Version None)
Quarter: 2011Q1

REPORT INFORMATION
  Report Type: 
  Country: None (occurrence: None)
  Receive Date: 20110131
  Receipt Date: 20110121
  Transmission Date: 20110831
  Serious: Yes (Other)
  Sender: FDA-Public Use
  Company Number: ES-ASTRAZENECA-2011SE03869

PATIENT
  Age: 46 Year
  Sex: Female

DRUGS (1)
  1. LIDOCAINE HYDROCHLORIDE IN PLASTIC CONTAINER [Suspect]
     Route: 058

REACTIONS (1)
  - EMBOLIA CUTIS MEDICAMENTOSA [None]
